FAERS Safety Report 9982628 (Version 2)
Quarter: 2014Q1

REPORT INFORMATION
  Report Type: Report from Study
  Country: US (occurrence: US)
  Receive Date: 20140307
  Receipt Date: 20140307
  Transmission Date: 20141002
  Serious: Yes (Hospitalization)
  Sender: FDA-Public Use
  Company Number: US-ABBVIE-13P-163-1168313-00

PATIENT
  Age: 43 Year
  Sex: Female

DRUGS (8)
  1. HUMIRA [Suspect]
     Indication: CROHN^S DISEASE
     Dates: start: 20130912, end: 20130912
  2. HUMIRA [Suspect]
     Dates: start: 20130927, end: 20130927
  3. HUMIRA [Suspect]
  4. METHOTREXATE [Concomitant]
     Indication: CROHN^S DISEASE
     Dosage: A WEEK
  5. BIRTH CONTROL PILLS [Concomitant]
     Indication: PRODUCT USED FOR UNKNOWN INDICATION
  6. IRON [Concomitant]
     Indication: BLOOD IRON DECREASED
  7. IRON [Concomitant]
     Indication: ANAEMIA
  8. FOLIC ACID [Concomitant]
     Indication: PRODUCT USED FOR UNKNOWN INDICATION

REACTIONS (3)
  - Pyrexia [Recovered/Resolved]
  - Infection [Unknown]
  - Crohn^s disease [Unknown]
